FAERS Safety Report 14615198 (Version 4)
Quarter: 2018Q2

REPORT INFORMATION
  Report Type: Report from Study
  Country: US (occurrence: US)
  Receive Date: 20180308
  Receipt Date: 20180608
  Transmission Date: 20180711
  Serious: Yes (Hospitalization)
  Sender: FDA-Public Use
  Company Number: US-ACTELION-A-NJ2018-168636

PATIENT
  Age: 79 Year
  Sex: Female

DRUGS (18)
  1. TRACLEER [Suspect]
     Active Substance: BOSENTAN
     Indication: PULMONARY ARTERIAL HYPERTENSION
     Dosage: 125 MG, BID
     Route: 048
     Dates: start: 20100806
  2. FLUTICASONE. [Concomitant]
     Active Substance: FLUTICASONE
  3. MELOXICAM. [Concomitant]
     Active Substance: MELOXICAM
  4. TYLENOL [Concomitant]
     Active Substance: ACETAMINOPHEN
  5. BACLOFEN. [Concomitant]
     Active Substance: BACLOFEN
  6. HYZAAR [Concomitant]
     Active Substance: HYDROCHLOROTHIAZIDE\LOSARTAN POTASSIUM
  7. ASPIRIN. [Concomitant]
     Active Substance: ASPIRIN
  8. LASIX [Concomitant]
     Active Substance: FUROSEMIDE
  9. PREDNISONE. [Concomitant]
     Active Substance: PREDNISONE
  10. ISOSORBIDE. [Concomitant]
     Active Substance: ISOSORBIDE
  11. DIGOXIN. [Concomitant]
     Active Substance: DIGOXIN
  12. VITAMIN D [Concomitant]
     Active Substance: CHOLECALCIFEROL
  13. WARFARIN [Concomitant]
     Active Substance: WARFARIN
  14. MIRTAZAPINE. [Concomitant]
     Active Substance: MIRTAZAPINE
  15. CARVEDILOL. [Concomitant]
     Active Substance: CARVEDILOL
  16. ENSURE [Concomitant]
     Active Substance: AMINO ACIDS\DEXTROSE\ELECTROLYTES NOS\SOYBEAN OIL\VITAMINS
  17. GLIMEPIRIDE. [Concomitant]
     Active Substance: GLIMEPIRIDE
  18. PRILOSEC [Concomitant]
     Active Substance: OMEPRAZOLE MAGNESIUM

REACTIONS (2)
  - Epistaxis [Unknown]
  - Nasal septum deviation [Unknown]

NARRATIVE: CASE EVENT DATE: 20180417
